FAERS Safety Report 15960257 (Version 1)
Quarter: 2019Q1

REPORT INFORMATION
  Report Type: Spontaneous
  Country: US (occurrence: US)
  Receive Date: 20190214
  Receipt Date: 20190214
  Transmission Date: 20190417
  Serious: No
  Sender: FDA-Public Use
  Company Number: US-ROCHE-2193974

PATIENT
  Sex: Male
  Weight: 104.42 kg

DRUGS (6)
  1. DEXAMETHASONE. [Concomitant]
     Active Substance: DEXAMETHASONE
     Dosage: ONGOING
     Route: 048
     Dates: start: 20180314
  2. CITALOPRAM [Concomitant]
     Active Substance: CITALOPRAM HYDROBROMIDE
     Dosage: ONGOING
     Route: 048
     Dates: start: 20180314
  3. ASPIRIN. [Concomitant]
     Active Substance: ASPIRIN
     Dosage: ONGOING
     Route: 048
     Dates: start: 20180314
  4. ATORVASTATIN [Concomitant]
     Active Substance: ATORVASTATIN
     Dosage: ONGOING
     Route: 048
     Dates: start: 20180314
  5. ALECENSA [Suspect]
     Active Substance: ALECTINIB HYDROCHLORIDE
     Indication: LUNG NEOPLASM MALIGNANT
     Dosage: 4 CAPS, ONGOING
     Route: 048
     Dates: start: 20180316
  6. ALBUTEROL SULFATE. [Concomitant]
     Active Substance: ALBUTEROL SULFATE
     Dosage: ONGOING
     Route: 065
     Dates: start: 20180314

REACTIONS (1)
  - Blood creatinine increased [Unknown]
